FAERS Safety Report 6688886-1 (Version None)
Quarter: 2010Q2

REPORT INFORMATION
  Report Type: 
  Country: None (occurrence: None)
  Receive Date: 20100420
  Receipt Date: 20100408
  Transmission Date: 20101027
  Serious: Yes (Life-Threatening)
  Sender: FDA-Public Use
  Company Number: TR-WYE-H14556110

PATIENT
  Age: 43 Year
  Sex: Male
  Weight: 65 kg

DRUGS (2)
  1. PANTPAS [Suspect]
     Indication: GASTROOESOPHAGEAL REFLUX DISEASE
     Route: 048
     Dates: start: 20100401, end: 20100402
  2. SUCRALFATE [Concomitant]
     Dosage: UNKNOWN

REACTIONS (4)
  - DYSPNOEA [None]
  - LARYNGEAL OEDEMA [None]
  - RASH [None]
  - TONGUE OEDEMA [None]
